FAERS Safety Report 4385410-3 (Version None)
Quarter: 2004Q2

REPORT INFORMATION
  Report Type: 
  Country: None (occurrence: None)
  Receive Date: 20040628
  Receipt Date: 20040621
  Transmission Date: 20050107
  Serious: Yes (Death, Hospitalization)
  Sender: FDA-Public Use
  Company Number: PHNU2004DE02193

PATIENT
  Age: 78 Year
  Sex: Male
  Weight: 70 kg

DRUGS (14)
  1. LOCOL [Suspect]
     Indication: MYOCARDIAL ISCHAEMIA
     Dosage: 40 MG, QD
     Route: 048
     Dates: start: 20030101
  2. ASPIRIN [Concomitant]
  3. LORZAAR [Concomitant]
     Dosage: 75 MG, QD
  4. ISOKET RETARD [Concomitant]
     Dosage: 40 MG, QD
  5. AMARYL [Concomitant]
     Dosage: 2 MG, QD
  6. METFORMIN HCL [Concomitant]
     Dosage: 850MG/DAY
  7. FORADIL [Concomitant]
  8. BRONCHORETARD [Concomitant]
  9. DECORTIN [Concomitant]
  10. BERODUAL [Concomitant]
  11. AARANE [Concomitant]
  12. CALCINIL [Concomitant]
  13. GRAPEFRUIT JUICE [Suspect]
     Dosage: 5 BOTTLES DURING ONE WEEK
  14. TACHOLIQUIN [Concomitant]

REACTIONS (14)
  - ARTHRALGIA [None]
  - BLOOD CREATINE PHOSPHOKINASE INCREASED [None]
  - BLOOD CREATININE INCREASED [None]
  - C-REACTIVE PROTEIN INCREASED [None]
  - DEPRESSED LEVEL OF CONSCIOUSNESS [None]
  - DISSEMINATED INTRAVASCULAR COAGULATION [None]
  - ELECTROMECHANICAL DISSOCIATION [None]
  - FIBRIN D DIMER INCREASED [None]
  - MUSCULOSKELETAL PAIN [None]
  - MYOGLOBIN BLOOD INCREASED [None]
  - RED BLOOD CELL SEDIMENTATION RATE INCREASED [None]
  - RENAL FAILURE [None]
  - RESPIRATORY FAILURE [None]
  - RHABDOMYOLYSIS [None]
